FAERS Safety Report 16643355 (Version 5)
Quarter: 2019Q4

REPORT INFORMATION
  Report Type: Spontaneous
  Country: US (occurrence: US)
  Receive Date: 20190729
  Receipt Date: 20191014
  Transmission Date: 20200122
  Serious: Yes (Hospitalization)
  Sender: FDA-Public Use
  Company Number: US-PFIZER INC-2019320732

PATIENT
  Age: 69 Year
  Sex: Female
  Weight: 97.52 kg

DRUGS (11)
  1. GABAPENTIN. [Suspect]
     Active Substance: GABAPENTIN
     Indication: NEURALGIA
     Dosage: UNK
  2. MORPHINE SULFATE. [Suspect]
     Active Substance: MORPHINE SULFATE
     Indication: PAIN
     Dosage: 15 MG, 2X/DAY
     Dates: end: 20190518
  3. CYCLOBENZAPRINE. [Suspect]
     Active Substance: CYCLOBENZAPRINE
     Dosage: UNK
  4. HYDROMORPHONE HYDROCHLORIDE. [Suspect]
     Active Substance: HYDROMORPHONE HYDROCHLORIDE
     Indication: NEURALGIA
     Dosage: UNK, 2X/DAY
     Dates: start: 20190727
  5. MORPHINE SULFATE. [Suspect]
     Active Substance: MORPHINE SULFATE
     Indication: NEURALGIA
     Dosage: 15 MG, 3X/DAY
     Dates: start: 20190418, end: 20190612
  6. OXYCODONE [Suspect]
     Active Substance: OXYCODONE
     Dosage: UNK
  7. HYDROCODONE [Suspect]
     Active Substance: HYDROCODONE
     Indication: NEURALGIA
     Dosage: UNK, 3X/DAY
     Dates: start: 20181207, end: 20190202
  8. HYDROCODONE/ACETAMINOPHEN [Suspect]
     Active Substance: ACETAMINOPHEN\HYDROCODONE
     Dosage: UNK
  9. TRAMADOL. [Suspect]
     Active Substance: TRAMADOL
     Indication: NEURALGIA
     Dosage: 50 MG, 1-2 TABLETS, 2X/DAY AS NEEDED
     Route: 048
     Dates: start: 20190612
  10. PERCOCET [Suspect]
     Active Substance: ACETAMINOPHEN\OXYCODONE HYDROCHLORIDE
     Indication: NEURALGIA
     Dosage: UNK, 3X/DAY(7.5 - 325MG)
     Dates: start: 20190202, end: 20190418
  11. OXYCONTIN [Suspect]
     Active Substance: OXYCODONE HYDROCHLORIDE
     Dosage: UNK

REACTIONS (3)
  - Drug ineffective [Not Recovered/Not Resolved]
  - Drug ineffective for unapproved indication [Not Recovered/Not Resolved]
  - Off label use [Unknown]

NARRATIVE: CASE EVENT DATE: 201806
